FAERS Safety Report 11342249 (Version 1)
Quarter: 2015Q3

REPORT INFORMATION
  Report Type: Spontaneous
  Country: US (occurrence: US)
  Receive Date: 20150805
  Receipt Date: 20150805
  Transmission Date: 20151125
  Serious: No
  Sender: FDA-Public Use
  Company Number: US-BAYER-2015-387768

PATIENT
  Age: 71 Year
  Sex: Female
  Weight: 59 kg

DRUGS (4)
  1. CLARITIN REDITABS [Suspect]
     Active Substance: LORATADINE
     Indication: BONE PAIN
     Dosage: 5 MG, BID
     Route: 048
  2. NEURONTIN [Concomitant]
     Active Substance: GABAPENTIN
  3. VITAMIN B6 [Concomitant]
     Active Substance: PYRIDOXINE HYDROCHLORIDE
     Dosage: UNK DF, UNK
  4. CLARITIN [Suspect]
     Active Substance: LORATADINE
     Indication: BONE PAIN
     Dosage: 10 MG, QD
     Dates: start: 201503

REACTIONS (2)
  - Product use issue [Unknown]
  - Off label use [Unknown]

NARRATIVE: CASE EVENT DATE: 201503
